FAERS Safety Report 4662252-2 (Version None)
Quarter: 2005Q2

REPORT INFORMATION
  Report Type: 
  Country: None (occurrence: None)
  Receive Date: 20050516
  Receipt Date: 20050505
  Transmission Date: 20051028
  Serious: Yes (Other)
  Sender: FDA-Public Use
  Company Number: PL-JNJFOC-20050502508

PATIENT

DRUGS (4)
  1. CLADRIBINE [Suspect]
     Indication: NON-HODGKIN'S LYMPHOMA
     Route: 042
  2. CLADRIBINE [Suspect]
     Indication: CHRONIC LYMPHOCYTIC LEUKAEMIA
     Dosage: GIVEN OD DAYS 2-6 OF CYCLE WITH RITUXIMAB; THE THERAPY WAS REPEATED AT 4 WEEKS INTERVALS
     Route: 042
  3. RITUXIMAB [Suspect]
     Indication: NON-HODGKIN'S LYMPHOMA
  4. RITUXIMAB [Suspect]
     Indication: CHRONIC LYMPHOCYTIC LEUKAEMIA
     Dosage: GIVEN ON DAYS 1 OF CYCLE WITH CLADRIBINE; THE THERAPY WAS REPEATED AT 4 WEEKS INTERVALS.

REACTIONS (1)
  - APLASIA PURE RED CELL [None]
